FAERS Safety Report 20991844 (Version 3)
Quarter: 2022Q3

REPORT INFORMATION
  Report Type: Spontaneous
  Country: AR (occurrence: AR)
  Receive Date: 20220622
  Receipt Date: 20220714
  Transmission Date: 20221026
  Serious: No
  Sender: FDA-Public Use
  Company Number: AR-Y-MABS THERAPEUTICS, INC.-EAP2022-AR-000746

PATIENT
  Age: 5 Year
  Sex: Male

DRUGS (11)
  1. DANYELZA [Suspect]
     Active Substance: NAXITAMAB-GQGK
     Indication: Neuroblastoma recurrent
     Dosage: CYCLE 1, DOSE 1
     Route: 042
     Dates: start: 20220404, end: 20220404
  2. DANYELZA [Suspect]
     Active Substance: NAXITAMAB-GQGK
     Dosage: CYCLE 3, DOSE 1
     Route: 042
     Dates: start: 20220606, end: 20220606
  3. DANYELZA [Suspect]
     Active Substance: NAXITAMAB-GQGK
     Dosage: CYCLE 3, DOSE 2
     Route: 042
     Dates: start: 20220608, end: 20220608
  4. DANYELZA [Suspect]
     Active Substance: NAXITAMAB-GQGK
     Dosage: CYCLE 3, DOSE 3
     Route: 042
     Dates: start: 20220610, end: 20220610
  5. SODIUM CHLORIDE [Concomitant]
     Active Substance: SODIUM CHLORIDE
     Indication: Premedication
  6. METHYLPREDNISOLONE [Concomitant]
     Active Substance: METHYLPREDNISOLONE
     Indication: Premedication
  7. CETIRIZINE [Concomitant]
     Active Substance: CETIRIZINE HYDROCHLORIDE
     Indication: Premedication
  8. ACETAMINOPHEN [Concomitant]
     Active Substance: ACETAMINOPHEN
     Indication: Premedication
  9. MORPHINE [Concomitant]
     Active Substance: MORPHINE
     Indication: Premedication
  10. LORAZEPAM [Concomitant]
     Active Substance: LORAZEPAM
     Indication: Premedication
  11. ONDANSETRON [Concomitant]
     Active Substance: ONDANSETRON
     Indication: Premedication

REACTIONS (16)
  - Hypotension [Recovered/Resolved]
  - Hypotension [Recovered/Resolved]
  - Rales [Recovered/Resolved]
  - Respiration abnormal [Recovered/Resolved]
  - Oxygen saturation decreased [Recovered/Resolved]
  - Hypotension [Recovered/Resolved]
  - Respiration abnormal [Recovered/Resolved]
  - Oxygen saturation decreased [Recovered/Resolved]
  - Cough [Recovered/Resolved]
  - Application site papules [Recovered/Resolved]
  - Prolonged expiration [Recovered/Resolved]
  - Wheezing [Recovered/Resolved]
  - Abdominal pain [Recovered/Resolved]
  - Vomiting [Recovered/Resolved]
  - Nausea [Recovered/Resolved]
  - Wheezing [Unknown]

NARRATIVE: CASE EVENT DATE: 20220606
